FAERS Safety Report 5140002-3 (Version None)
Quarter: 2006Q4

REPORT INFORMATION
  Report Type: 
  Country: None (occurrence: None)
  Receive Date: 20061031
  Receipt Date: 20061019
  Transmission Date: 20070319
  Serious: Yes (Hospitalization, Other)
  Sender: FDA-Public Use
  Company Number: PHBS2006BR16488

PATIENT
  Age: 29 Year
  Sex: Female

DRUGS (3)
  1. TEGRETOL [Suspect]
     Indication: EPILEPSY
     Route: 048
  2. HIDANTAL [Concomitant]
  3. TEGRETOL [Suspect]
     Indication: EPILEPSY
     Dosage: 1600 MG/DAY
     Route: 048

REACTIONS (4)
  - AMNESIA [None]
  - CONFUSIONAL STATE [None]
  - EPILEPSY [None]
  - SOLILOQUY [None]
